FAERS Safety Report 8778339 (Version 3)
Quarter: 2012Q4

REPORT INFORMATION
  Report Type: Report from Study
  Country: KR (occurrence: KR)
  Receive Date: 20120911
  Receipt Date: 20121002
  Transmission Date: 20130627
  Serious: Yes (Hospitalization)
  Sender: FDA-Public Use
  Company Number: KR-009507513-1209KOR002445

PATIENT
  Age: 62 Year
  Sex: Male

DRUGS (10)
  1. EMEND 125MG [Suspect]
     Indication: PROPHYLAXIS OF NAUSEA AND VOMITING
     Dosage: 125 mg, qd
     Route: 048
     Dates: start: 20080114, end: 20080114
  2. EMEND 80 MG [Suspect]
     Indication: PROPHYLAXIS OF NAUSEA AND VOMITING
     Dosage: 80 mg, qd
     Route: 048
     Dates: start: 20080115, end: 20080116
  3. CISPLATIN [Suspect]
     Indication: CHEMOTHERAPY
     Dosage: 112.5 mg, qd
     Route: 042
     Dates: start: 20080114, end: 20080114
  4. PACLITAXEL [Suspect]
     Indication: CHEMOTHERAPY
     Dosage: 262.5 mg, qd
     Route: 042
     Dates: start: 20080114, end: 20080114
  5. DEXAMETHASONE [Concomitant]
     Indication: PROPHYLAXIS OF NAUSEA AND VOMITING
     Dosage: 20 mg, qd
     Route: 042
     Dates: start: 20080114, end: 20080114
  6. DEXAMETHASONE [Concomitant]
     Dosage: 8 mg, qd
     Route: 048
     Dates: start: 20080115, end: 20080117
  7. GRANISETRON HYDROCHLORIDE [Concomitant]
     Indication: PROPHYLAXIS OF NAUSEA AND VOMITING
     Dosage: 3 mg, qd
     Route: 042
     Dates: start: 20080114, end: 20080114
  8. METOCLOPRAMIDE [Concomitant]
     Indication: PROPHYLAXIS OF NAUSEA AND VOMITING
     Dosage: 10 mg, bid
     Route: 042
     Dates: start: 20080114, end: 20080114
  9. MAGNESIUM OXIDE [Suspect]
     Indication: CONSTIPATION PROPHYLAXIS
     Dosage: 500 mg, bid
     Route: 048
     Dates: start: 20080108
  10. SUCRALFATE [Suspect]
     Indication: PROPHYLAXIS
     Dosage: 1 g, qid
     Route: 048
     Dates: start: 20080108

REACTIONS (1)
  - Asthenia [Recovered/Resolved]
